FAERS Safety Report 4479377-7 (Version None)
Quarter: 2004Q4

REPORT INFORMATION
  Report Type: 
  Country: None (occurrence: None)
  Receive Date: 20041020
  Receipt Date: 20041017
  Transmission Date: 20050328
  Serious: Yes (Other)
  Sender: FDA-Public Use
  Company Number: PHBS2004IL13725

PATIENT
  Age: 70 Year
  Sex: Female

DRUGS (3)
  1. AREDIA [Suspect]
     Indication: MULTIPLE MYELOMA
     Dosage: 90 MG
     Route: 042
     Dates: start: 20010401
  2. PREDNISONE [Concomitant]
     Route: 065
  3. MELPHALAN [Concomitant]
     Route: 065

REACTIONS (3)
  - DENTAL OPERATION [None]
  - OSTEOMYELITIS [None]
  - SURGERY [None]
